FAERS Safety Report 6569404-5 (Version None)
Quarter: 2010Q1

REPORT INFORMATION
  Report Type: 
  Country: None (occurrence: None)
  Receive Date: 20100204
  Receipt Date: 20100129
  Transmission Date: 20100710
  Serious: Yes (Hospitalization)
  Sender: FDA-Public Use
  Company Number: US-BRISTOL-MYERS SQUIBB COMPANY-14882757

PATIENT
  Age: 80 Year
  Sex: Female
  Weight: 86 kg

DRUGS (1)
  1. COUMADIN [Suspect]
     Dosage: DOSE INCREASED TO 3MG
     Route: 048
     Dates: start: 19980101

REACTIONS (4)
  - CELLULITIS [None]
  - CONSTIPATION [None]
  - CONTUSION [None]
  - RECTAL HAEMORRHAGE [None]
